FAERS Safety Report 19609282 (Version 1)
Quarter: 2021Q3

REPORT INFORMATION
  Report Type: Spontaneous
  Country: US (occurrence: US)
  Receive Date: 20210726
  Receipt Date: 20210726
  Transmission Date: 20211014
  Serious: Yes (Hospitalization)
  Sender: FDA-Public Use
  Company Number: None

PATIENT
  Age: 72 Year
  Sex: Female
  Weight: 101.25 kg

DRUGS (7)
  1. ATORVASTATIN [Concomitant]
     Active Substance: ATORVASTATIN
  2. VITAMIN B12 [Concomitant]
     Active Substance: CYANOCOBALAMIN
  3. CASIRIVIMAB/IMDEVIMAB [Suspect]
     Active Substance: CASIRIVIMAB\IMDEVIMAB
     Indication: COVID-19
     Dates: start: 20210719, end: 20210719
  4. 5 ANTI?DEPRESSANTS [Concomitant]
  5. FISH OIL [Concomitant]
     Active Substance: FISH OIL
  6. C?PAP [Concomitant]
  7. VITAMIN D3 [Concomitant]
     Active Substance: CHOLECALCIFEROL

REACTIONS (6)
  - Pneumonia bacterial [None]
  - Chills [None]
  - Dyspnoea [None]
  - Tremor [None]
  - Pyrexia [None]
  - Superinfection [None]

NARRATIVE: CASE EVENT DATE: 20210721
